FAERS Safety Report 7459683-4 (Version None)
Quarter: 2011Q2

REPORT INFORMATION
  Report Type: 
  Country: None (occurrence: None)
  Receive Date: 20110505
  Receipt Date: 20110422
  Transmission Date: 20111010
  Serious: Yes (Hospitalization, Other)
  Sender: FDA-Public Use
  Company Number: US-ELI_LILLY_AND_COMPANY-US201008007271

PATIENT
  Sex: Female
  Weight: 79.365 kg

DRUGS (19)
  1. ESOMEPRAZOLE [Concomitant]
     Dosage: 40 MG, DAILY (1/D)
  2. NEXIUM [Concomitant]
  3. CYPROHEPTADINE HCL [Concomitant]
     Dosage: 4 MG, 3/D
  4. LIPITOR [Concomitant]
  5. FORTEO [Suspect]
     Indication: OSTEOPOROSIS
     Dosage: 20 UG, DAILY (1/D)
     Route: 058
     Dates: start: 20100722, end: 20100919
  6. FORTEO [Suspect]
     Dosage: 20 UG, DAILY (1/D)
  7. TORADOL [Concomitant]
     Indication: MIGRAINE
  8. PRAVASTATIN [Concomitant]
     Dosage: 80 MG, EACH EVENING
  9. XANAX [Concomitant]
  10. AMITRIPTYLINE [Concomitant]
  11. PROZAC [Concomitant]
  12. FORTEO [Suspect]
     Dosage: 20 UG, DAILY (1/D)
  13. GEMFIBROZIL [Concomitant]
     Dosage: 600 MG, 2/D
  14. ERGOCALCIFEROL [Concomitant]
     Dosage: 50000 U, OTHER
  15. AMBIEN [Concomitant]
  16. ANTIBIOTICS [Concomitant]
  17. CALCIUM [Concomitant]
     Dosage: 500 MG, 2/D
  18. ATENOLOL [Concomitant]
  19. NEUROTIN                           /00949202/ [Concomitant]

REACTIONS (28)
  - HEPATIC STEATOSIS [None]
  - SCIATICA [None]
  - PHARYNGEAL OEDEMA [None]
  - DYSPNOEA [None]
  - DEHYDRATION [None]
  - VOMITING [None]
  - CONVULSION [None]
  - SWELLING [None]
  - HEPATIC ENZYME INCREASED [None]
  - ACNE [None]
  - HEADACHE [None]
  - HAEMORRHAGE [None]
  - CONSTIPATION [None]
  - ARTHRALGIA [None]
  - SWELLING FACE [None]
  - IMPAIRED HEALING [None]
  - DRUG HYPERSENSITIVITY [None]
  - DIARRHOEA [None]
  - ASTHENIA [None]
  - HEPATITIS [None]
  - FALL [None]
  - BACK PAIN [None]
  - MIGRAINE [None]
  - BLINDNESS [None]
  - GASTROENTERITIS [None]
  - PNEUMONIA [None]
  - DEPRESSION [None]
  - CONTUSION [None]
